FAERS Safety Report 4824437-1 (Version None)
Quarter: 2005Q4

REPORT INFORMATION
  Report Type: 
  Country: None (occurrence: None)
  Receive Date: 20051108
  Receipt Date: 20051031
  Transmission Date: 20060501
  Serious: Yes (Hospitalization)
  Sender: FDA-Public Use
  Company Number: 163-20785-05060251

PATIENT
  Age: 52 Year
  Sex: Male

DRUGS (12)
  1. THALOMID [Suspect]
     Indication: MULTIPLE MYELOMA
     Dosage: 50 MG, DAILY, ORAL
     Route: 048
     Dates: start: 20050513, end: 20050101
  2. THALOMID [Suspect]
     Indication: MULTIPLE MYELOMA
     Dosage: 50 MG, DAILY, ORAL
     Route: 048
     Dates: start: 20050601
  3. DEXAMETHASONE [Concomitant]
  4. COUMADIN [Concomitant]
  5. PRILOSEC [Concomitant]
  6. NORVASC [Concomitant]
  7. TEQUIN [Concomitant]
  8. ACYCLOVIR [Concomitant]
  9. OXYCODONE HCL [Concomitant]
  10. CENTRUM SILVER (CENTRUM SILVER) [Concomitant]
  11. FOLIC ACID [Concomitant]
  12. OSCAL (CALCIUM CARBONATE) [Concomitant]

REACTIONS (4)
  - DEPRESSION [None]
  - PANIC ATTACK [None]
  - THROMBOTIC THROMBOCYTOPENIC PURPURA [None]
  - UNEVALUABLE EVENT [None]
